FAERS Safety Report 7918953-3 (Version None)
Quarter: 2011Q4

REPORT INFORMATION
  Report Type: 
  Country: None (occurrence: None)
  Receive Date: 20111116
  Receipt Date: 20111110
  Transmission Date: 20120403
  Serious: Yes (Hospitalization)
  Sender: FDA-Public Use
  Company Number: PHHO2011US01359

PATIENT
  Sex: Male
  Weight: 70.76 kg

DRUGS (8)
  1. CERTICAN [Suspect]
     Indication: RENAL TRANSPLANT
     Dosage: 0.75 MG, BID
     Route: 048
     Dates: start: 20101017, end: 20101020
  2. CERTICAN [Suspect]
     Dosage: 3 MG, BID
     Route: 048
     Dates: start: 20101124, end: 20110513
  3. TACROLIMUS [Suspect]
     Indication: RENAL TRANSPLANT
     Dosage: 2.0 MG, BID
     Route: 048
     Dates: start: 20101017
  4. CERTICAN [Suspect]
     Dosage: 2.25 MG, BID
     Route: 048
     Dates: start: 20101117, end: 20101123
  5. TACROLIMUS [Suspect]
     Dosage: 3.0 MG, BID
     Dates: start: 20110117
  6. CERTICAN [Suspect]
     Dosage: 3.0 MG, BID
     Route: 048
     Dates: start: 20101021, end: 20101116
  7. CERTICAN [Suspect]
     Dosage: UNK
     Route: 048
     Dates: start: 20110514
  8. PREDNISONE TAB [Suspect]
     Indication: RENAL TRANSPLANT
     Dosage: 5 MG, DAILY
     Route: 048
     Dates: start: 20101201

REACTIONS (3)
  - INTERNAL HERNIA [None]
  - INCISIONAL HERNIA [None]
  - SMALL INTESTINAL OBSTRUCTION [None]
